FAERS Safety Report 5715025-3 (Version None)
Quarter: 2008Q2

REPORT INFORMATION
  Report Type: 
  Country: None (occurrence: None)
  Receive Date: 20080423
  Receipt Date: 20080414
  Transmission Date: 20081010
  Serious: Yes (Disabling, Other)
  Sender: FDA-Public Use
  Company Number: BE-ABBOTT-08P-013-0447386-00

PATIENT
  Sex: Male

DRUGS (1)
  1. HUMIRA [Suspect]
     Indication: RHEUMATOID ARTHRITIS
     Dates: start: 20040518, end: 20080330

REACTIONS (3)
  - AMYOTROPHIC LATERAL SCLEROSIS [None]
  - ASTHENIA [None]
  - WEIGHT DECREASED [None]
